FAERS Safety Report 9844931 (Version 1)
Quarter: 2014Q1

REPORT INFORMATION
  Report Type: Spontaneous
  Country: US (occurrence: None)
  Receive Date: 20140122
  Receipt Date: 20140122
  Transmission Date: 20141002
  Serious: Yes (Death)
  Sender: FDA-Public Use
  Company Number: B0959183A

PATIENT
  Age: 48 Year
  Sex: Male

DRUGS (6)
  1. BUPROPION HYDROCHLORIDE [Suspect]
     Route: 048
  2. VENLAFAXINE HYDROCHLORIDE (VENLAFAXINE HYDROCHLORIDE) [Suspect]
     Route: 048
  3. PRAZOSIN [Suspect]
     Route: 048
  4. BUSPIRONE (BUSPIRONE) [Suspect]
     Route: 048
  5. GABAPENTIN (GABAPENTIN) [Suspect]
     Route: 048
  6. UNSPECIFIED [Suspect]
     Route: 048

REACTIONS (1)
  - Completed suicide [None]
